FAERS Safety Report 16615453 (Version 1)
Quarter: 2019Q3

REPORT INFORMATION
  Report Type: Spontaneous
  Country: PL (occurrence: PL)
  Receive Date: 20190723
  Receipt Date: 20190723
  Transmission Date: 20191004
  Serious: Yes (Other)
  Sender: FDA-Public Use
  Company Number: PL-BAYER-2015-492314

PATIENT
  Age: 24 Year
  Sex: Female
  Weight: 56 kg

DRUGS (2)
  1. ULTRAVIST [Suspect]
     Active Substance: IOPROMIDE
     Indication: COMPUTERISED TOMOGRAM PELVIS
  2. ULTRAVIST [Suspect]
     Active Substance: IOPROMIDE
     Indication: COMPUTERISED TOMOGRAM ABDOMEN
     Dosage: 75 ML, ONCE
     Dates: start: 20151216, end: 20151216

REACTIONS (5)
  - Dermatitis bullous [Recovered/Resolved]
  - Dyspnoea [Recovered/Resolved]
  - Blister [Recovered/Resolved]
  - Dysgeusia [Recovered/Resolved]
  - Blood pressure decreased [Recovered/Resolved]

NARRATIVE: CASE EVENT DATE: 20151216
